FAERS Safety Report 5139936-5 (Version None)
Quarter: 2006Q4

REPORT INFORMATION
  Report Type: 
  Country: None (occurrence: None)
  Receive Date: 20061031
  Receipt Date: 20061025
  Transmission Date: 20070319
  Serious: Yes (Death)
  Sender: FDA-Public Use
  Company Number: DE-ELI_LILLY_AND_COMPANY-DE200610004828

PATIENT
  Age: 72 Year
  Sex: Male
  Weight: 57 kg

DRUGS (1)
  1. ZYPREXA [Suspect]
     Indication: DELUSION
     Dosage: 5 MG, DAILY (1/D)
     Route: 048
     Dates: start: 20060519, end: 20060523

REACTIONS (4)
  - COMPLETED SUICIDE [None]
  - HEART INJURY [None]
  - ILL-DEFINED DISORDER [None]
  - UNDERWEIGHT [None]
